FAERS Safety Report 6761509-9 (Version None)
Quarter: 2010Q2

REPORT INFORMATION
  Report Type: 
  Country: None (occurrence: None)
  Receive Date: 20100607
  Receipt Date: 20100526
  Transmission Date: 20101027
  Serious: Yes (Death, Hospitalization)
  Sender: FDA-Public Use
  Company Number: 2010AC000136

PATIENT
  Age: 89 Year
  Sex: Female

DRUGS (10)
  1. DIGOXIN [Suspect]
     Dosage: PO
     Route: 048
     Dates: start: 20071106
  2. DIGOXIN [Suspect]
     Dosage: PO
     Route: 048
     Dates: start: 20080613
  3. DIGOXIN [Suspect]
     Dosage: .250 MG; QD; PO
     Route: 048
  4. DIGOXIN [Suspect]
     Dosage: .125 MG; QD; PO
     Route: 048
     Dates: start: 20051201, end: 20080601
  5. LISINOPRIL [Concomitant]
  6. LASIX [Concomitant]
  7. ATIVAN [Concomitant]
  8. LOPRESSOR [Concomitant]
  9. COUMADIN [Concomitant]
  10. INSULIN [Concomitant]

REACTIONS (45)
  - AORTIC STENOSIS [None]
  - AORTIC VALVE CALCIFICATION [None]
  - ARTERIOSCLEROSIS [None]
  - ATELECTASIS [None]
  - ATRIAL FIBRILLATION [None]
  - BRADYCARDIA [None]
  - BUNDLE BRANCH BLOCK LEFT [None]
  - BUNDLE BRANCH BLOCK RIGHT [None]
  - CALCULUS URETERIC [None]
  - CARDIAC ARREST [None]
  - CARDIAC FAILURE CONGESTIVE [None]
  - CARDIOACTIVE DRUG LEVEL INCREASED [None]
  - CAROTID ARTERY STENOSIS [None]
  - CEREBROVASCULAR ACCIDENT [None]
  - CONSTIPATION [None]
  - DIVERTICULITIS [None]
  - DYSPHAGIA [None]
  - ELECTROCARDIOGRAM QRS COMPLEX PROLONGED [None]
  - ELECTROCARDIOGRAM ST SEGMENT ELEVATION [None]
  - FACIAL PALSY [None]
  - FAECALOMA [None]
  - GASTROOESOPHAGEAL REFLUX DISEASE [None]
  - HAEMATOCHEZIA [None]
  - HIATUS HERNIA [None]
  - HYDRONEPHROSIS [None]
  - HYPONATRAEMIA [None]
  - HYPOTENSION [None]
  - HYPOVOLAEMIA [None]
  - INJURY [None]
  - MITRAL VALVE CALCIFICATION [None]
  - MITRAL VALVE INCOMPETENCE [None]
  - MYOCARDIAL ISCHAEMIA [None]
  - PNEUMONIA PRIMARY ATYPICAL [None]
  - PNEUMOPERITONEUM [None]
  - PULMONARY CONGESTION [None]
  - PULMONARY OEDEMA [None]
  - RENAL FAILURE ACUTE [None]
  - RENAL FAILURE CHRONIC [None]
  - RESPIRATION ABNORMAL [None]
  - RESPIRATORY FAILURE [None]
  - RESPIRATORY SYNCYTIAL VIRUS TEST POSITIVE [None]
  - THERAPEUTIC AGENT TOXICITY [None]
  - TRICUSPID VALVE INCOMPETENCE [None]
  - UNEVALUABLE EVENT [None]
  - UPPER RESPIRATORY TRACT INFECTION [None]
